FAERS Safety Report 10733811 (Version 2)
Quarter: 2015Q1

REPORT INFORMATION
  Report Type: Report from Study
  Country: DE (occurrence: DE)
  Receive Date: 20150123
  Receipt Date: 20150219
  Transmission Date: 20150721
  Serious: Yes (Death)
  Sender: FDA-Public Use
  Company Number: DE-ABBVIE-13P-062-1083214-00

PATIENT
  Age: 84 Year
  Sex: Male

DRUGS (2)
  1. TRENANTONE [Suspect]
     Active Substance: LEUPROLIDE ACETATE
     Indication: PROSTATE CANCER
     Route: 058
     Dates: start: 20120531, end: 20120830
  2. BICALUTIN [Concomitant]
     Indication: PRODUCT USED FOR UNKNOWN INDICATION

REACTIONS (1)
  - Death [Fatal]

NARRATIVE: CASE EVENT DATE: 20121128
